FAERS Safety Report 8042439-1 (Version None)
Quarter: 2012Q1

REPORT INFORMATION
  Report Type: 
  Country: None (occurrence: None)
  Receive Date: 20120112
  Receipt Date: 20111228
  Transmission Date: 20120608
  Serious: Yes (Death)
  Sender: FDA-Public Use
  Company Number: US-UCBSA-048859

PATIENT
  Age: 73 Year
  Sex: Female

DRUGS (7)
  1. PHENYTOIN [Suspect]
     Route: 048
  2. OMEPRAZOLE [Suspect]
     Route: 048
  3. SERTRALINE HYDROCHLORIDE [Suspect]
     Route: 048
  4. GABAPENTIN [Suspect]
     Route: 048
  5. HYDROXYZINE [Suspect]
     Route: 048
  6. METOPROLOL [Suspect]
     Route: 048
  7. ANTIHYPERLIPIDEMIC [Suspect]
     Route: 048

REACTIONS (1)
  - COMPLETED SUICIDE [None]
